FAERS Safety Report 8220637-1 (Version None)
Quarter: 2012Q1

REPORT INFORMATION
  Report Type: 
  Country: None (occurrence: None)
  Receive Date: 20120320
  Receipt Date: 20120313
  Transmission Date: 20120608
  Serious: Yes (Hospitalization, Other)
  Sender: FDA-Public Use
  Company Number: JP-ASTELLAS-2012JP002212

PATIENT
  Age: 51 Year
  Sex: Male

DRUGS (18)
  1. METHOTREXATE [Concomitant]
     Indication: PROPHYLAXIS AGAINST GRAFT VERSUS HOST DISEASE
     Dosage: UNK
     Route: 065
  2. CYTARABINE [Concomitant]
     Route: 065
  3. LEVOFLOXACIN [Concomitant]
     Dosage: UNK
     Route: 065
  4. FLUDARABINE PHOSPHATE [Concomitant]
     Route: 065
  5. STEROID [Concomitant]
     Route: 065
  6. TEICOPLANIN [Concomitant]
     Route: 065
  7. METHYLPREDNISOLONE [Concomitant]
     Indication: PROPHYLAXIS AGAINST GRAFT VERSUS HOST DISEASE
     Dosage: UNK
     Route: 065
  8. ANTI-THYMOCYTE GLOBULIN RABBIT NOS [Concomitant]
     Route: 065
  9. MEROPENEM [Concomitant]
     Route: 065
  10. CYTARABINE [Concomitant]
     Route: 065
  11. FLUDARABINE PHOSPHATE [Concomitant]
     Route: 065
  12. BUSULFAN [Concomitant]
     Route: 042
  13. MELPHALAN HYDROCHLORIDE [Concomitant]
     Route: 065
  14. VORICONAZOLE [Concomitant]
     Dosage: UNK
     Route: 065
  15. PROGRAF [Suspect]
     Indication: PROPHYLAXIS AGAINST GRAFT VERSUS HOST DISEASE
     Dosage: UNK
     Route: 065
  16. FUNGUARD [Suspect]
     Dosage: 150 MG, UNKNOWN/D
     Route: 042
  17. ANTI-THYMOCYTE GLOBULIN RABBIT NOS [Concomitant]
     Route: 065
  18. DAUNORUBICIN HCL [Concomitant]
     Route: 065

REACTIONS (3)
  - DRUG INEFFECTIVE [None]
  - SYSTEMIC CANDIDA [None]
  - ACUTE GRAFT VERSUS HOST DISEASE [None]
